FAERS Safety Report 7052685-1 (Version None)
Quarter: 2010Q4

REPORT INFORMATION
  Report Type: 
  Country: None (occurrence: None)
  Receive Date: 20101019
  Receipt Date: 20101007
  Transmission Date: 20110411
  Serious: Yes (Other)
  Sender: FDA-Public Use
  Company Number: US-PFIZER INC-2010104400

PATIENT
  Sex: Female
  Weight: 45.351 kg

DRUGS (6)
  1. TOVIAZ [Suspect]
     Indication: HYPERTONIC BLADDER
     Dosage: 4 MG, 1X/DAY
     Route: 048
     Dates: start: 20100720
  2. LEVOTHYROXINE [Concomitant]
     Indication: THYROID DISORDER
     Dosage: 116 UG, UNK
  3. OMEPRAZOLE [Concomitant]
     Dosage: UNK
  4. FISH OIL [Concomitant]
     Dosage: UNK
  5. COENZYME Q10 [Concomitant]
  6. OXYBUTYNIN [Concomitant]
     Dates: start: 20100715

REACTIONS (2)
  - DRUG EFFECT DECREASED [None]
  - MENTAL IMPAIRMENT [None]
